FAERS Safety Report 22192292 (Version 1)
Quarter: 2023Q2

REPORT INFORMATION
  Report Type: Spontaneous
  Country: None (occurrence: CN)
  Receive Date: 20230410
  Receipt Date: 20230410
  Transmission Date: 20230722
  Serious: Yes (Hospitalization)
  Sender: FDA-Public Use
  Company Number: CN-Ascend Therapeutics US, LLC-2140111

PATIENT
  Age: 17 Year
  Sex: Male
  Weight: 65 kg

DRUGS (6)
  1. ESTROGEL [Suspect]
     Active Substance: ESTRADIOL
     Indication: Trans-sexualism
     Route: 065
     Dates: start: 20220713, end: 20221010
  2. ESTRADIOL VALERATE [Suspect]
     Active Substance: ESTRADIOL VALERATE
     Route: 048
     Dates: start: 20221019, end: 202301
  3. ESTRADIOL VALERATE [Suspect]
     Active Substance: ESTRADIOL VALERATE
     Route: 048
     Dates: start: 202301, end: 20230317
  4. CYPROTERONE [Suspect]
     Active Substance: CYPROTERONE
     Route: 048
     Dates: start: 20220706, end: 20230325
  5. ESTRADIOL [Suspect]
     Active Substance: ESTRADIOL
     Route: 065
     Dates: start: 20220713, end: 20221010
  6. ESTRADIOL [Suspect]
     Active Substance: ESTRADIOL
     Route: 065
     Dates: start: 20230317, end: 20230325

REACTIONS (3)
  - Liver function test abnormal [Recovering/Resolving]
  - Rash [Unknown]
  - Off label use [None]

NARRATIVE: CASE EVENT DATE: 20220101
